FAERS Safety Report 9613558 (Version 1)
Quarter: 2013Q4

REPORT INFORMATION
  Report Type: Spontaneous
  Country: US (occurrence: US)
  Receive Date: 20131010
  Receipt Date: 20131010
  Transmission Date: 20140711
  Serious: Yes (Hospitalization)
  Sender: FDA-Public Use
  Company Number: US-TAKEDA-2013TUS001325

PATIENT
  Sex: 0

DRUGS (3)
  1. DEXILANT [Suspect]
     Indication: GASTROOESOPHAGEAL REFLUX DISEASE
     Dosage: 60 MG, TID
     Route: 048
     Dates: start: 2008, end: 2011
  2. DEXILANT [Suspect]
     Dosage: 60 MG, QOD
     Route: 048
     Dates: start: 2011, end: 201308
  3. DEXILANT [Suspect]
     Dosage: 60 MG, QD
     Route: 048
     Dates: start: 201308

REACTIONS (5)
  - Intestinal resection [Unknown]
  - Abdominal pain [Recovered/Resolved]
  - Diarrhoea [Not Recovered/Not Resolved]
  - Weight decreased [Not Recovered/Not Resolved]
  - Aspartate aminotransferase increased [Not Recovered/Not Resolved]
